FAERS Safety Report 8108883-9 (Version None)
Quarter: 2012Q1

REPORT INFORMATION
  Report Type: 
  Country: None (occurrence: None)
  Receive Date: 20120202
  Receipt Date: 20120201
  Transmission Date: 20120608
  Serious: Yes (Other)
  Sender: FDA-Public Use
  Company Number: US-GLAXOSMITHKLINE-A0963821A

PATIENT
  Sex: Male

DRUGS (1)
  1. LAMICTAL [Suspect]
     Indication: BIPOLAR DISORDER
     Route: 065

REACTIONS (6)
  - MOTOR DYSFUNCTION [None]
  - CONVULSION [None]
  - MALAISE [None]
  - EMOTIONAL DISTRESS [None]
  - HYPOAESTHESIA [None]
  - ADVERSE EVENT [None]
